FAERS Safety Report 10994946 (Version 1)
Quarter: 2015Q2

REPORT INFORMATION
  Report Type: Spontaneous
  Country: US (occurrence: US)
  Receive Date: 20150407
  Receipt Date: 20150407
  Transmission Date: 20150821
  Serious: Yes (Hospitalization, Other)
  Sender: FDA-Public Use
  Company Number: US-ELI_LILLY_AND_COMPANY-US201503009692

PATIENT
  Sex: Female

DRUGS (3)
  1. ZYPREXA [Suspect]
     Active Substance: OLANZAPINE
     Indication: PSYCHOTIC DISORDER
     Dosage: 2.5 MG, UNKNOWN
     Route: 065
  2. OLANZAPINE. [Suspect]
     Active Substance: OLANZAPINE
     Indication: PSYCHOTIC DISORDER
     Dosage: 2.5 MG, UNKNOWN
  3. SYNTHROID [Concomitant]
     Active Substance: LEVOTHYROXINE SODIUM
     Indication: HORMONE THERAPY
     Dosage: 1 DF, UNKNOWN

REACTIONS (10)
  - Infection [Unknown]
  - Seizure [Unknown]
  - Abnormal behaviour [Unknown]
  - Urinary tract infection [Unknown]
  - Drug level increased [Unknown]
  - Disorientation [Unknown]
  - Mental status changes [Recovering/Resolving]
  - Drug ineffective [Recovered/Resolved]
  - Hyponatraemia [Recovering/Resolving]
  - Malaria [Unknown]
